FAERS Safety Report 4496711-2 (Version None)
Quarter: 2004Q4

REPORT INFORMATION
  Report Type: 
  Country: None (occurrence: None)
  Receive Date: 20040923
  Receipt Date: 20040701
  Transmission Date: 20050328
  Serious: Yes (Other)
  Sender: FDA-Public Use
  Company Number: WAES 0407USA00273

PATIENT

DRUGS (1)
  1. INVANZ [Suspect]
     Dosage: 50 MG/DAILY/IV
     Route: 042

REACTIONS (1)
  - CONVULSION [None]
